FAERS Safety Report 4484238-3 (Version None)
Quarter: 2004Q4

REPORT INFORMATION
  Report Type: 
  Country: None (occurrence: None)
  Receive Date: 20041025
  Receipt Date: 20040617
  Transmission Date: 20050328
  Serious: Yes (Other)
  Sender: FDA-Public Use
  Company Number: FR-GLAXOSMITHKLINE-B0336564A

PATIENT
  Age: 13 Year
  Sex: Male

DRUGS (1)
  1. VENTOLIN [Suspect]
     Route: 061
     Dates: start: 20040609

REACTIONS (2)
  - CHEMICAL BURN OF SKIN [None]
  - INTENTIONAL MISUSE [None]
